FAERS Safety Report 4471109-1 (Version None)
Quarter: 2004Q4

REPORT INFORMATION
  Report Type: 
  Country: None (occurrence: None)
  Receive Date: 20041011
  Receipt Date: 20040915
  Transmission Date: 20050328
  Serious: Yes (Other)
  Sender: FDA-Public Use
  Company Number: PHRM2004FR02832

PATIENT
  Age: 24 Year
  Sex: Female

DRUGS (3)
  1. TRILEPTAL [Suspect]
     Indication: EPILEPSY
     Dosage: 900 MG DAILY
     Route: 048
     Dates: start: 20040301, end: 20040901
  2. DEPAKENE [Suspect]
     Indication: EPILEPSY
     Dosage: 750 MG, BID
     Route: 048
     Dates: start: 20030101, end: 20040601
  3. NEURONTIN [Suspect]
     Indication: EPILEPSY
     Dosage: 600 MG, TID
     Route: 048
     Dates: start: 20030101, end: 20040401

REACTIONS (5)
  - CYTOLYTIC HEPATITIS [None]
  - DRUG INEFFECTIVE [None]
  - GAMMA-GLUTAMYLTRANSFERASE INCREASED [None]
  - HEPATITIS [None]
  - TRANSAMINASES INCREASED [None]
